FAERS Safety Report 22118281 (Version 1)
Quarter: 2023Q1

REPORT INFORMATION
  Report Type: Spontaneous
  Country: DK (occurrence: None)
  Receive Date: 20230321
  Receipt Date: 20230321
  Transmission Date: 20230418
  Serious: Yes (Life-Threatening, Hospitalization)
  Sender: FDA-Public Use
  Company Number: 2023A062985

PATIENT
  Age: 65 Year
  Sex: Female
  Weight: 60 kg

DRUGS (8)
  1. DAPAGLIFLOZIN [Suspect]
     Active Substance: DAPAGLIFLOZIN
     Indication: Type 2 diabetes mellitus
     Dosage: STRENGTH: 10 MG
     Route: 048
     Dates: start: 20220317, end: 20230204
  2. PREGABALIN [Concomitant]
     Active Substance: PREGABALIN
     Indication: Neuralgia
     Dates: start: 20220304
  3. GLICLAZIDE [Concomitant]
     Active Substance: GLICLAZIDE
     Indication: Type 2 diabetes mellitus
     Dates: start: 20210330, end: 20230204
  4. HJERTEALBYL [Concomitant]
     Indication: Thrombosis prophylaxis
     Dates: start: 20190621
  5. ATORVASTATIN [Concomitant]
     Active Substance: ATORVASTATIN
     Indication: Hypercholesterolaemia
     Dates: start: 20190312, end: 20230203
  6. FLUCONAZOLE [Concomitant]
     Active Substance: FLUCONAZOLE
     Indication: Fungal infection
     Dates: start: 20200920
  7. METFORMIN HYDROCHLORIDE [Concomitant]
     Active Substance: METFORMIN HYDROCHLORIDE
     Indication: Type 2 diabetes mellitus
     Dates: start: 20210330, end: 20230204
  8. LOSARSTAD [Concomitant]
     Indication: Hypertension
     Dates: start: 20120208, end: 20230203

REACTIONS (4)
  - Pyrexia [Unknown]
  - Renal impairment [Recovering/Resolving]
  - Urosepsis [Recovering/Resolving]
  - Urinary tract infection fungal [Recovering/Resolving]

NARRATIVE: CASE EVENT DATE: 20230131
